FAERS Safety Report 5980093-0 (Version None)
Quarter: 2008Q4

REPORT INFORMATION
  Report Type: 
  Country: None (occurrence: None)
  Receive Date: 20081205
  Receipt Date: 20081126
  Transmission Date: 20090506
  Serious: Yes (Other)
  Sender: FDA-Public Use
  Company Number: JP-AVENTIS-200813668JP

PATIENT
  Age: 59 Year
  Sex: Female

DRUGS (7)
  1. CLEXANE [Suspect]
     Route: 058
     Dates: start: 20081118, end: 20081124
  2. PANSPORIN [Concomitant]
  3. MEIACT [Concomitant]
  4. FERROMIA                           /00023516/ [Concomitant]
  5. IRZAIM [Concomitant]
  6. MUCOSTA [Concomitant]
  7. LOXONIN                            /00890701/ [Concomitant]

REACTIONS (4)
  - ALANINE AMINOTRANSFERASE INCREASED [None]
  - ASPARTATE AMINOTRANSFERASE INCREASED [None]
  - LIVER FUNCTION TEST ABNORMAL [None]
  - LIVER INJURY [None]
